FAERS Safety Report 8306446-3 (Version None)
Quarter: 2012Q2

REPORT INFORMATION
  Report Type: 
  Country: None (occurrence: None)
  Receive Date: 20120423
  Receipt Date: 20120409
  Transmission Date: 20120825
  Serious: Yes (Other)
  Sender: FDA-Public Use
  Company Number: US-AMGEN-USASP2012023547

PATIENT
  Age: 30 Year
  Sex: Male

DRUGS (3)
  1. ENBREL [Suspect]
     Indication: PRODUCT USED FOR UNKNOWN INDICATION
     Dosage: UNK
     Dates: start: 20110101
  2. ZOLOFT [Suspect]
     Dosage: 100 MG, 1X/DAY
  3. ZOLOFT [Suspect]
     Indication: ATTENTION DEFICIT/HYPERACTIVITY DISORDER
     Dosage: 100 MG, DAILY
     Dates: start: 20050101

REACTIONS (5)
  - MOUTH ULCERATION [None]
  - RHEUMATOID FACTOR POSITIVE [None]
  - DRUG INEFFECTIVE [None]
  - PAIN [None]
  - HYPERSENSITIVITY [None]
